FAERS Safety Report 9878155 (Version 1)
Quarter: 2014Q1

REPORT INFORMATION
  Report Type: Spontaneous
  Country: FR (occurrence: FR)
  Receive Date: 20140206
  Receipt Date: 20140206
  Transmission Date: 20141002
  Serious: Yes (Hospitalization)
  Sender: FDA-Public Use
  Company Number: FR-UCBSA-111157

PATIENT
  Age: 47 Year
  Sex: Female

DRUGS (3)
  1. KEPPRA [Suspect]
     Dosage: 500MG
     Route: 048
     Dates: start: 201303
  2. IMUREL [Suspect]
     Route: 048
     Dates: start: 201202
  3. CORTANCYL [Suspect]
     Route: 048
     Dates: start: 2009

REACTIONS (3)
  - Muscle spasms [Not Recovered/Not Resolved]
  - Emotional disorder [Not Recovered/Not Resolved]
  - Hyperaesthesia [Not Recovered/Not Resolved]
